FAERS Safety Report 10343227 (Version 2)
Quarter: 2014Q3

REPORT INFORMATION
  Report Type: Spontaneous
  Country: US (occurrence: US)
  Receive Date: 20140725
  Receipt Date: 20140725
  Transmission Date: 20150326
  Serious: No
  Sender: FDA-Public Use
  Company Number: US-PFIZER INC-2014113798

PATIENT
  Age: 75 Year
  Sex: Male
  Weight: 90.7 kg

DRUGS (1)
  1. LYRICA [Suspect]
     Active Substance: PREGABALIN
     Indication: DIABETIC NEUROPATHY
     Dosage: 75 MG, 3X/DAY
     Dates: end: 20140717

REACTIONS (1)
  - Pain [Unknown]

NARRATIVE: CASE EVENT DATE: 20140718
